FAERS Safety Report 16661050 (Version 1)
Quarter: 2019Q3

REPORT INFORMATION
  Report Type: Spontaneous
  Country: DE (occurrence: DE)
  Receive Date: 20190802
  Receipt Date: 20190802
  Transmission Date: 20191004
  Serious: Yes (Hospitalization)
  Sender: FDA-Public Use
  Company Number: DE-TORRENT-00015039

PATIENT
  Sex: Female

DRUGS (1)
  1. LEVETIRACETAM. [Suspect]
     Active Substance: LEVETIRACETAM
     Indication: PRODUCT USED FOR UNKNOWN INDICATION
     Dosage: UNKNOWN
     Dates: start: 20190507, end: 20190605

REACTIONS (13)
  - Disturbance in attention [Recovering/Resolving]
  - Panic attack [Recovering/Resolving]
  - Tension headache [Recovering/Resolving]
  - Muscle twitching [Recovering/Resolving]
  - Dysaesthesia [Recovering/Resolving]
  - Anxiety [Recovering/Resolving]
  - Disorganised speech [Recovering/Resolving]
  - Head discomfort [Recovering/Resolving]
  - Memory impairment [Recovering/Resolving]
  - Aphasia [Recovering/Resolving]
  - Dizziness [Recovering/Resolving]
  - Dysgraphia [Recovering/Resolving]
  - Thinking abnormal [Recovering/Resolving]
